FAERS Safety Report 20182006 (Version 1)
Quarter: 2021Q4

REPORT INFORMATION
  Report Type: Report from Study
  Country: JP (occurrence: JP)
  Receive Date: 20211214
  Receipt Date: 20211214
  Transmission Date: 20220303
  Serious: Yes (Death, Other)
  Sender: FDA-Public Use
  Company Number: JP-GILEAD-2021-0560805

PATIENT

DRUGS (1)
  1. SOFOSBUVIR\VELPATASVIR [Suspect]
     Active Substance: SOFOSBUVIR\VELPATASVIR
     Indication: Hepatic cirrhosis
     Dosage: 1 DOSAGE FORM, QD
     Route: 048

REACTIONS (3)
  - Hepatic failure [Fatal]
  - Spontaneous bacterial peritonitis [Unknown]
  - Drug ineffective [Unknown]
